FAERS Safety Report 6838876-0 (Version None)
Quarter: 2010Q3

REPORT INFORMATION
  Report Type: 
  Country: None (occurrence: None)
  Receive Date: 20100713
  Receipt Date: 20070709
  Transmission Date: 20110219
  Serious: Yes (Other)
  Sender: FDA-Public Use
  Company Number: US-PFIZER INC-2007042149

PATIENT
  Sex: Female
  Weight: 66.7 kg

DRUGS (4)
  1. CHANTIX [Suspect]
     Indication: SMOKING CESSATION THERAPY
     Dates: start: 20070501, end: 20070519
  2. WELLBUTRIN [Concomitant]
     Indication: DYSTHYMIC DISORDER
  3. PAXIL [Concomitant]
     Indication: DYSTHYMIC DISORDER
  4. THYROID TAB [Concomitant]

REACTIONS (1)
  - DEPRESSION [None]
